FAERS Safety Report 8919172 (Version 3)
Quarter: 2012Q4

REPORT INFORMATION
  Report Type: 
  Country: US (occurrence: US)
  Receive Date: 20121121
  Receipt Date: 20121207
  Transmission Date: 20130627
  Serious: Yes (Other)
  Sender: FDA-Public Use
  Company Number: US-BAYER-2012-121088

PATIENT
  Age: 28 Year
  Sex: Female

DRUGS (1)
  1. MIRENA [Suspect]
     Indication: CONTRACEPTION
     Dosage: 20 mcg/24hr, CONT
     Route: 015
     Dates: start: 20120614, end: 20121113

REACTIONS (5)
  - Genital haemorrhage [Recovered/Resolved]
  - Alopecia [None]
  - Abdominal pain lower [None]
  - Drug hypersensitivity [None]
  - Depression [None]
